FAERS Safety Report 16379349 (Version 2)
Quarter: 2019Q2

REPORT INFORMATION
  Report Type: Report from Study
  Country: ZA (occurrence: ZA)
  Receive Date: 20190531
  Receipt Date: 20190605
  Transmission Date: 20190711
  Serious: No
  Sender: FDA-Public Use
  Company Number: PHHY2019ZA100606

PATIENT
  Age: 49 Year
  Sex: Male

DRUGS (3)
  1. TUVIGIN [Suspect]
     Active Substance: FINGOLIMOD HYDROCHLORIDE
     Dosage: 0.5 MG, UNK
     Route: 048
  2. FOSAVANCE [Concomitant]
     Active Substance: ALENDRONATE SODIUM\CHOLECALCIFEROL
     Indication: PRODUCT USED FOR UNKNOWN INDICATION
     Route: 065
  3. TUVIGIN [Suspect]
     Active Substance: FINGOLIMOD HYDROCHLORIDE
     Indication: MULTIPLE SCLEROSIS
     Dosage: 0.5 MG, UNK
     Route: 048
     Dates: start: 20190425

REACTIONS (4)
  - Chest pain [Unknown]
  - Heart rate irregular [Unknown]
  - Blood pressure fluctuation [Unknown]
  - Concussion [Unknown]

NARRATIVE: CASE EVENT DATE: 20190425
